FAERS Safety Report 11120836 (Version 1)
Quarter: 2015Q2

REPORT INFORMATION
  Report Type: Report from Study
  Country: PL (occurrence: PL)
  Receive Date: 20150519
  Receipt Date: 20150519
  Transmission Date: 20150821
  Serious: Yes (Death)
  Sender: FDA-Public Use
  Company Number: PL-ROCHE-1571200

PATIENT
  Sex: Female
  Weight: 89.9 kg

DRUGS (9)
  1. ENCORTON [Concomitant]
     Active Substance: PREDNISONE
     Indication: RHEUMATOID ARTHRITIS
     Route: 048
  2. ROACTEMRA [Suspect]
     Active Substance: TOCILIZUMAB
     Indication: RHEUMATOID ARTHRITIS
     Route: 042
     Dates: start: 20141016, end: 20150325
  3. NOLPAZA (POLAND) [Concomitant]
     Route: 048
  4. FUROSEMID [Concomitant]
     Active Substance: FUROSEMIDE
     Indication: HYPERTENSION
     Route: 048
  5. VANATEX [Concomitant]
     Indication: HYPERTENSION
     Route: 048
  6. LIPANTHYL [Concomitant]
     Active Substance: FENOFIBRATE
     Indication: HYPERCHOLESTEROLAEMIA
     Dosage: ONE TABLET
     Route: 048
  7. ACARD [Concomitant]
     Active Substance: ASPIRIN
     Indication: ANGINA PECTORIS
     Route: 048
  8. BETO ZK [Concomitant]
     Active Substance: METOPROLOL SUCCINATE
     Indication: HYPERTENSION
     Route: 048
  9. KALIPOZ PROLONGATUM [Concomitant]
     Dosage: ONE TABLET
     Route: 048

REACTIONS (1)
  - Death [Fatal]
